FAERS Safety Report 26010330 (Version 1)
Quarter: 2025Q4

REPORT INFORMATION
  Report Type: Report from Study
  Country: US (occurrence: US)
  Receive Date: 20251107
  Receipt Date: 20251107
  Transmission Date: 20260118
  Serious: Yes (Death, Other)
  Sender: GILEAD
  Company Number: US-GILEAD-2025-0735701

PATIENT
  Age: 71 Year
  Sex: Female

DRUGS (1)
  1. TENOFOVIR ALAFENAMIDE [Suspect]
     Active Substance: TENOFOVIR ALAFENAMIDE
     Indication: Hepatitis B
     Dosage: TAKE 1 TABLET BY MOUTH DAILY (25MG)
     Route: 048
     Dates: start: 20240509, end: 20251014

REACTIONS (1)
  - Death [Fatal]

NARRATIVE: CASE EVENT DATE: 20251028
